FAERS Safety Report 6331468-1 (Version None)
Quarter: 2009Q3

REPORT INFORMATION
  Report Type: 
  Country: None (occurrence: None)
  Receive Date: 20090827
  Receipt Date: 20090817
  Transmission Date: 20100115
  Serious: Yes (Other)
  Sender: FDA-Public Use
  Company Number: JP-PFIZER INC-2009247329

PATIENT
  Age: 66 Year

DRUGS (1)
  1. CARDENALIN [Suspect]
     Dosage: 8 MG, 1X/DAY
     Route: 048

REACTIONS (1)
  - RHABDOMYOLYSIS [None]
